FAERS Safety Report 10769499 (Version 1)
Quarter: 2015Q1

REPORT INFORMATION
  Report Type: Spontaneous
  Country: US (occurrence: US)
  Receive Date: 20150206
  Receipt Date: 20150206
  Transmission Date: 20150721
  Serious: Yes (Death)
  Sender: FDA-Public Use
  Company Number: US-PERRIGO-15US001392

PATIENT
  Age: 42 Year
  Sex: Female

DRUGS (6)
  1. CLOMIPRAMINE [Suspect]
     Active Substance: CLOMIPRAMINE
     Indication: DRUG ABUSE
     Dosage: UNKNOWN, UNKNOWN
     Route: 048
  2. MORPHINE SULFATE 20 MG/ML 0L8 [Suspect]
     Active Substance: MORPHINE SULFATE
     Indication: DRUG ABUSE
     Dosage: UNKNOWN, UNKNOWN
     Route: 048
  3. AMPHETAMINE [Suspect]
     Active Substance: AMPHETAMINE
     Indication: DRUG ABUSE
     Dosage: UNKNOWN, UNKNOWN
     Route: 048
  4. SERTRALINE [Suspect]
     Active Substance: SERTRALINE HYDROCHLORIDE
     Indication: DRUG ABUSE
     Dosage: UNKNOWN, UNKNOWN
     Route: 048
  5. OXYCODONE [Suspect]
     Active Substance: OXYCODONE
     Indication: DRUG ABUSE
     Dosage: UNKNOWN, UNKNOWN
     Route: 048
  6. PROMETHAZINE HYDROCHLORIDE 12.5 MG 4J3 [Suspect]
     Active Substance: PROMETHAZINE HYDROCHLORIDE
     Indication: DRUG ABUSE
     Dosage: UNKNOWN, UNKNOWN
     Route: 048

REACTIONS (1)
  - Death [Fatal]
